FAERS Safety Report 9061889 (Version 1)
Quarter: 2013Q1

REPORT INFORMATION
  Report Type: Spontaneous
  Country: US (occurrence: None)
  Receive Date: 20130122
  Receipt Date: 20130122
  Transmission Date: 20140127
  Serious: Yes (Other)
  Sender: FDA-Public Use
  Company Number: ACO_33748_2013

PATIENT
  Age: 55 Year
  Sex: Male
  Weight: 86.2 kg

DRUGS (6)
  1. AMPYRA (DALFAMPRIDINE) TABLET, 10 MG [Suspect]
     Indication: GAIT DISTURBANCE
     Dosage: 10 MG, Q 12 HRS, ORAL
     Route: 048
     Dates: start: 201204
  2. AMBIEN (ZOLPIDEM TARTRATE) [Concomitant]
  3. CELEBREX (CELECOXIB) [Concomitant]
  4. CLONIDINE (CLONIDINE HYDROCHLORIDE) [Concomitant]
  5. LORTAB (HYDROCODONE BITARTRATE, PARACETAMOL) [Concomitant]
  6. NUVIGIL (ARMODAFINIL) [Concomitant]

REACTIONS (3)
  - Rotator cuff repair [None]
  - Gait disturbance [None]
  - Balance disorder [None]
